FAERS Safety Report 4454680-5 (Version None)
Quarter: 2004Q3

REPORT INFORMATION
  Report Type: 
  Country: None (occurrence: None)
  Receive Date: 20040920
  Receipt Date: 20040920
  Transmission Date: 20050211
  Serious: Yes (Other)
  Sender: FDA-Public Use
  Company Number: None

PATIENT
  Age: 60 Year
  Sex: Female
  Weight: 72.5755 kg

DRUGS (2)
  1. LEVAQUIN [Suspect]
     Indication: URINARY TRACT INFECTION
  2. CIPRO [Suspect]

REACTIONS (3)
  - ARTHRALGIA [None]
  - DIFFICULTY IN WALKING [None]
  - PAIN IN EXTREMITY [None]
